FAERS Safety Report 6057724-2 (Version None)
Quarter: 2009Q1

REPORT INFORMATION
  Report Type: 
  Country: None (occurrence: None)
  Receive Date: 20090129
  Receipt Date: 20090126
  Transmission Date: 20090719
  Serious: Yes (Other)
  Sender: FDA-Public Use
  Company Number: JP-ASTRAZENECA-2009AP00823

PATIENT
  Age: 27 Year
  Sex: Female
  Weight: 40 kg

DRUGS (3)
  1. DIPRIVAN [Suspect]
     Indication: SEDATION
     Dosage: ADMINISTERED AT 3ML-8ML/H.
     Route: 042
     Dates: start: 20081010, end: 20081113
  2. DECACORT [Concomitant]
     Route: 041
     Dates: start: 20081009, end: 20081010
  3. OMEPRAL [Concomitant]
     Indication: PROPHYLAXIS AGAINST GASTROINTESTINAL ULCER
     Dosage: DOSE UNKNOWN
     Route: 042
     Dates: start: 20081009, end: 20081010

REACTIONS (1)
  - DELAYED RECOVERY FROM ANAESTHESIA [None]
